FAERS Safety Report 21061548 (Version 1)
Quarter: 2022Q3

REPORT INFORMATION
  Report Type: Spontaneous
  Country: GB (occurrence: GB)
  Receive Date: 20220709
  Receipt Date: 20220709
  Transmission Date: 20221026
  Serious: Yes (Hospitalization, Other)
  Sender: FDA-Public Use
  Company Number: None

PATIENT
  Sex: Female

DRUGS (1)
  1. PREGABALIN [Suspect]
     Active Substance: PREGABALIN
     Indication: Fibromyalgia
     Dosage: UNK
     Route: 065

REACTIONS (7)
  - Nephropathy [Unknown]
  - Sepsis [Unknown]
  - Musculoskeletal chest pain [Unknown]
  - Dyspnoea [Unknown]
  - Abdominal pain [Unknown]
  - Foetal hypokinesia [Unknown]
  - Foetal death [Unknown]

NARRATIVE: CASE EVENT DATE: 20211204
